FAERS Safety Report 4763193-2 (Version None)
Quarter: 2005Q3

REPORT INFORMATION
  Report Type: 
  Country: None (occurrence: None)
  Receive Date: 20050902
  Receipt Date: 20050818
  Transmission Date: 20060218
  Serious: Yes (Other)
  Sender: FDA-Public Use
  Company Number: HQWYE010418AUG05

PATIENT
  Age: 39 Year
  Sex: Female

DRUGS (2)
  1. CORDARONE [Suspect]
     Indication: VENTRICULAR TACHYCARDIA
     Dosage: ^UNIQUE DOSE^
  2. HERBAL PREPARATION [Concomitant]

REACTIONS (4)
  - HEPATIC STEATOSIS [None]
  - HEPATIC TRAUMA [None]
  - LIVER DISORDER [None]
  - VENTRICULAR TACHYCARDIA [None]
